FAERS Safety Report 22088045 (Version 3)
Quarter: 2023Q2

REPORT INFORMATION
  Report Type: Spontaneous
  Country: US (occurrence: US)
  Receive Date: 20230313
  Receipt Date: 20230403
  Transmission Date: 20230721
  Serious: Yes (Hospitalization)
  Sender: FDA-Public Use
  Company Number: US-BRISTOL-MYERS SQUIBB COMPANY-2023-034633

PATIENT
  Age: 10 Decade
  Sex: Female

DRUGS (14)
  1. ELIQUIS [Interacting]
     Active Substance: APIXABAN
     Indication: Product used for unknown indication
  2. RISEDRONATE SODIUM [Interacting]
     Active Substance: RISEDRONATE SODIUM
     Indication: Product used for unknown indication
  3. ASPIRIN [Interacting]
     Active Substance: ASPIRIN
     Indication: Product used for unknown indication
  4. FAMOTIDINE [Interacting]
     Active Substance: FAMOTIDINE
     Indication: Product used for unknown indication
  5. DIGOXIN [Interacting]
     Active Substance: DIGOXIN
     Indication: Product used for unknown indication
  6. NEBIVOLOL [Interacting]
     Active Substance: NEBIVOLOL
     Indication: Product used for unknown indication
  7. FUROSEMIDE [Interacting]
     Active Substance: FUROSEMIDE
     Indication: Product used for unknown indication
  8. CALCIUM ACETATE [Interacting]
     Active Substance: CALCIUM ACETATE
     Indication: Product used for unknown indication
  9. VITAMIN D NOS [Interacting]
     Active Substance: VITAMIN D NOS
     Indication: Product used for unknown indication
  10. VITAMIN B12 [Interacting]
     Active Substance: CYANOCOBALAMIN
     Indication: Product used for unknown indication
  11. PREDNISONE [Interacting]
     Active Substance: PREDNISONE
     Indication: Product used for unknown indication
  12. DOCUSATE [Interacting]
     Active Substance: DOCUSATE
     Indication: Product used for unknown indication
  13. ROSUVASTATIN [Interacting]
     Active Substance: ROSUVASTATIN
     Indication: Product used for unknown indication
  14. GABAPENTIN [Interacting]
     Active Substance: GABAPENTIN
     Indication: Product used for unknown indication

REACTIONS (3)
  - Tremor [Unknown]
  - Drug interaction [Unknown]
  - Aphasia [Unknown]
